FAERS Safety Report 4368358-X (Version None)
Quarter: 2004Q2

REPORT INFORMATION
  Report Type: 
  Country: None (occurrence: None)
  Receive Date: 20040525
  Receipt Date: 20040510
  Transmission Date: 20050107
  Serious: Yes (Other)
  Sender: FDA-Public Use
  Company Number: S04-GER-02146-01

PATIENT
  Age: 29 Year
  Sex: Female

DRUGS (2)
  1. CIPRALEX (ESCITALOPRAM) [Suspect]
     Indication: PANIC ATTACK
     Dosage: 5 MG QD PO
     Route: 048
     Dates: start: 20040507
  2. SEROXAT ^CIBA-GEIGY^ (PAROXETINE HYDROHCHLORIDE) [Concomitant]

REACTIONS (5)
  - DISTURBANCE IN ATTENTION [None]
  - DYSKINESIA [None]
  - MEMORY IMPAIRMENT [None]
  - PERSONALITY CHANGE [None]
  - SOCIAL AVOIDANT BEHAVIOUR [None]
